FAERS Safety Report 24638873 (Version 1)
Quarter: 2024Q4

REPORT INFORMATION
  Report Type: Spontaneous
  Country: US (occurrence: US)
  Receive Date: 20241119
  Receipt Date: 20241119
  Transmission Date: 20250115
  Serious: No
  Sender: MERCK
  Company Number: US-009507513-2410USA010967

PATIENT
  Sex: Female
  Weight: 53.3 kg

DRUGS (1)
  1. WINREVAIR [Suspect]
     Active Substance: SOTATERCEPT-CSRK
     Dosage: UNK
     Dates: start: 20240916, end: 2024

REACTIONS (7)
  - Pruritus [Recovered/Resolved]
  - Rash pruritic [Recovered/Resolved]
  - Tongue pruritus [Recovered/Resolved]
  - Dysarthria [Recovered/Resolved]
  - Tongue discomfort [Recovered/Resolved]
  - Swollen tongue [Recovered/Resolved]
  - Adverse drug reaction [Unknown]

NARRATIVE: CASE EVENT DATE: 20240101
